FAERS Safety Report 16787185 (Version 2)
Quarter: 2019Q4

REPORT INFORMATION
  Report Type: Spontaneous
  Country: US (occurrence: US)
  Receive Date: 20190909
  Receipt Date: 20191024
  Transmission Date: 20200122
  Serious: No
  Sender: FDA-Public Use
  Company Number: US-SA-2019SA248126

PATIENT
  Age: 67 Year
  Sex: Male

DRUGS (1)
  1. ALLEGRA ALLERGY [Suspect]
     Active Substance: FEXOFENADINE HYDROCHLORIDE
     Indication: ALLERGY TO ANIMAL

REACTIONS (2)
  - Therapeutic product effect incomplete [Unknown]
  - Product storage error [Unknown]
